FAERS Safety Report 15700069 (Version 4)
Quarter: 2020Q1

REPORT INFORMATION
  Report Type: Spontaneous
  Country: US (occurrence: US)
  Receive Date: 20181207
  Receipt Date: 20200303
  Transmission Date: 20200409
  Serious: Yes (Other)
  Sender: FDA-Public Use
  Company Number: US-PFIZER INC-2018499666

PATIENT
  Age: 62 Year
  Sex: Male
  Weight: 70.76 kg

DRUGS (2)
  1. ARTHROTEC [Suspect]
     Active Substance: DICLOFENAC SODIUM\MISOPROSTOL
     Indication: ARTHRITIS
     Dosage: 75 MG, 2X/DAY
     Route: 048
     Dates: start: 2011
  2. ARTHROTEC [Suspect]
     Active Substance: DICLOFENAC SODIUM\MISOPROSTOL
     Indication: PAIN
     Dosage: UNK, 2X/DAY (75/200)
     Dates: start: 2014

REACTIONS (12)
  - Spinal stenosis [Unknown]
  - Gait disturbance [Recovered/Resolved]
  - Condition aggravated [Not Recovered/Not Resolved]
  - Cardiac disorder [Unknown]
  - Balance disorder [Unknown]
  - Movement disorder [Unknown]
  - Feeling cold [Recovered/Resolved]
  - Blood creatinine increased [Unknown]
  - Hypotension [Unknown]
  - Scoliosis [Not Recovered/Not Resolved]
  - Accident [Unknown]
  - Joint lock [Unknown]

NARRATIVE: CASE EVENT DATE: 2014
